FAERS Safety Report 16883819 (Version 2)
Quarter: 2021Q4

REPORT INFORMATION
  Report Type: Spontaneous
  Country: CA (occurrence: CA)
  Receive Date: 20191004
  Receipt Date: 20211109
  Transmission Date: 20220303
  Serious: Yes (Disabling, Other)
  Sender: FDA-Public Use
  Company Number: CA-AUROBINDO-AUR-APL-2019-063552

PATIENT
  Age: 25 Year
  Sex: Female
  Weight: 61 kg

DRUGS (1)
  1. CIPROFLOXACIN [Suspect]
     Active Substance: CIPROFLOXACIN
     Indication: Urinary tract infection
     Dosage: UNK UNK, TWO TIMES A DAY
     Route: 048

REACTIONS (6)
  - Ligament disorder [Recovering/Resolving]
  - Musculoskeletal pain [Recovering/Resolving]
  - Musculoskeletal stiffness [Recovering/Resolving]
  - Tendon discomfort [Recovering/Resolving]
  - Tendon disorder [Recovering/Resolving]
  - Tendon pain [Recovering/Resolving]
